FAERS Safety Report 4270714-5 (Version None)
Quarter: 2004Q1

REPORT INFORMATION
  Report Type: 
  Country: None (occurrence: None)
  Receive Date: 20040113
  Receipt Date: 20031229
  Transmission Date: 20041129
  Serious: Yes (Hospitalization)
  Sender: FDA-Public Use
  Company Number: 189397

PATIENT
  Age: 59 Year
  Sex: Female
  Weight: 77.1115 kg

DRUGS (8)
  1. AVONEX [Suspect]
     Indication: MULTIPLE SCLEROSIS
     Dosage: 30 MCG QW IM
     Route: 030
     Dates: start: 20000601, end: 20030801
  2. AVONEX [Suspect]
     Indication: MULTIPLE SCLEROSIS
     Dosage: 30 MCG QW IM
     Route: 030
     Dates: start: 20030801
  3. NEURONTIN [Concomitant]
  4. GLUCOPHAGE [Concomitant]
  5. DETROL [Concomitant]
  6. OXYBUTYNIN [Concomitant]
  7. IBUPROFEN [Concomitant]
  8. DARVOCET-N 100 [Concomitant]

REACTIONS (19)
  - ARTHRITIS INFECTIVE [None]
  - ARTHROPATHY [None]
  - ASTHENIA [None]
  - BLISTER [None]
  - BLOOD DISORDER [None]
  - BLOOD GLUCOSE DECREASED [None]
  - CIRCULATORY COLLAPSE [None]
  - CONFUSIONAL STATE [None]
  - DEHYDRATION [None]
  - ERYTHEMA [None]
  - FALL [None]
  - GASTROINTESTINAL INFECTION [None]
  - HYPERSENSITIVITY [None]
  - HYPOAESTHESIA [None]
  - LIGAMENT INJURY [None]
  - MUSCULAR WEAKNESS [None]
  - OEDEMA PERIPHERAL [None]
  - SKIN LACERATION [None]
  - STAPHYLOCOCCAL INFECTION [None]
